FAERS Safety Report 7960993-2 (Version None)
Quarter: 2011Q4

REPORT INFORMATION
  Report Type: 
  Country: None (occurrence: None)
  Receive Date: 20111207
  Receipt Date: 20111205
  Transmission Date: 20120403
  Serious: No
  Sender: FDA-Public Use
  Company Number: US-PFIZER INC-2011265919

PATIENT
  Sex: Female

DRUGS (1)
  1. ALAVERT [Suspect]
     Dosage: UNK

REACTIONS (3)
  - FLATULENCE [None]
  - HYPERCHLORHYDRIA [None]
  - DYSPEPSIA [None]
